FAERS Safety Report 16486452 (Version 1)
Quarter: 2019Q2

REPORT INFORMATION
  Report Type: Spontaneous
  Country: US (occurrence: US)
  Receive Date: 20190517
  Receipt Date: 20190517
  Transmission Date: 20190711
  Serious: No
  Sender: FDA-Public Use
  Company Number: None

PATIENT
  Age: 58 Year
  Sex: Female

DRUGS (3)
  1. METHOTREXATE MDV (2ML/VL) 25MG/ML NOVAPLUS/HOSPIRA [Suspect]
     Active Substance: METHOTREXATE
     Indication: RHEUMATOID ARTHRITIS
     Dosage: ?          OTHER DOSE:25MG (1ML);?
     Route: 058
     Dates: start: 20190401
  2. METHOTREXATE MDV (2ML/VL) 25MG/ML NOVAPLUS/HOSPIRA [Suspect]
     Active Substance: METHOTREXATE
     Indication: RHEUMATOID ARTHRITIS
  3. METHOTREXATE MDV (2ML/VL) 25MG/ML NOVAPLUS/HOSPIRA [Suspect]
     Active Substance: METHOTREXATE
     Indication: PSORIATIC ARTHROPATHY

REACTIONS (3)
  - Incorrect dose administered [None]
  - Diarrhoea [None]
  - Product dose omission [None]

NARRATIVE: CASE EVENT DATE: 20190401
